FAERS Safety Report 19065530 (Version 2)
Quarter: 2021Q3

REPORT INFORMATION
  Report Type: Spontaneous
  Country: NL (occurrence: NL)
  Receive Date: 20210327
  Receipt Date: 20210809
  Transmission Date: 20211014
  Serious: Yes (Other)
  Sender: FDA-Public Use
  Company Number: NVSC2021NL064033

PATIENT
  Age: 26 Year
  Sex: Female
  Weight: 67 kg

DRUGS (7)
  1. XEPLION [Suspect]
     Active Substance: PALIPERIDONE PALMITATE
     Indication: PRODUCT USED FOR UNKNOWN INDICATION
     Dosage: 150 MG, Q4W
     Route: 030
     Dates: start: 20200511, end: 20201101
  2. OLANZAPINE. [Suspect]
     Active Substance: OLANZAPINE
     Dosage: 7.5 MG(1 DD)
     Route: 048
     Dates: start: 20201208
  3. OLANZAPINE. [Suspect]
     Active Substance: OLANZAPINE
     Dosage: 2.5 MG
     Route: 048
     Dates: start: 202103
  4. TREVICTA [Suspect]
     Active Substance: PALIPERIDONE PALMITATE
     Indication: PRODUCT USED FOR UNKNOWN INDICATION
     Dosage: 525 MG, Q3MO
     Route: 030
     Dates: start: 202011
  5. AKINETON [Concomitant]
     Active Substance: BIPERIDEN HYDROCHLORIDE
     Indication: PRODUCT USED FOR UNKNOWN INDICATION
     Dosage: 1 MG(3DD)
     Route: 065
  6. OLANZAPINE. [Suspect]
     Active Substance: OLANZAPINE
     Indication: PRODUCT USED FOR UNKNOWN INDICATION
     Dosage: 10 MG(1 DD)
     Route: 048
     Dates: start: 20200603, end: 20201208
  7. TREVICTA [Suspect]
     Active Substance: PALIPERIDONE PALMITATE
     Dosage: 525 MG, Q3MO
     Route: 030
     Dates: start: 20201118, end: 20210515

REACTIONS (5)
  - Tardive dyskinesia [Unknown]
  - Dry eye [Unknown]
  - Blepharospasm [Recovering/Resolving]
  - Dystonia [Unknown]
  - Eye pain [Unknown]

NARRATIVE: CASE EVENT DATE: 202008
